FAERS Safety Report 8397076-6 (Version None)
Quarter: 2012Q2

REPORT INFORMATION
  Report Type: 
  Country: None (occurrence: None)
  Receive Date: 20120530
  Receipt Date: 20120522
  Transmission Date: 20120825
  Serious: Yes (Hospitalization)
  Sender: FDA-Public Use
  Company Number: US-CELGENEUS-163-21880-12052725

PATIENT
  Age: 72 Year
  Sex: Male
  Weight: 124 kg

DRUGS (6)
  1. REVLIMID [Suspect]
     Dosage: 5 MILLIGRAM
     Route: 048
     Dates: start: 20090316
  2. RITUXIMAB [Suspect]
     Dosage: 375MG/M2 AT 100MG/HR FOR FIRST 15MIN AND INCREASED OVER NEXT 45-60 MIN ON DAY 5, CYCLE1, AND ON DAY
     Route: 041
     Dates: end: 20091005
  3. FLUDARABINE PHOSPHATE [Suspect]
     Dosage: 25MG/M2 IV OVER 30MIN OR 40MG/M2 PO ON DAYS 1-5
     Route: 065
     Dates: start: 20090316, end: 20091009
  4. RITUXIMAB [Suspect]
     Dosage: 325MG/M2 AT 50-400MG/HR BASED INFUSION REACTIONS ON DAY 3, CYCLE 1
     Route: 041
  5. REVLIMID [Suspect]
     Dosage: 10 MILLIGRAM
     Route: 048
     Dates: start: 20100629, end: 20100720
  6. RITUXIMAB [Suspect]
     Dosage: 50 MILLIGRAM/SQ. METER
     Route: 041
     Dates: start: 20090316

REACTIONS (1)
  - MYELOID LEUKAEMIA [None]
